FAERS Safety Report 16115758 (Version 1)
Quarter: 2019Q1

REPORT INFORMATION
  Report Type: Report from Study
  Country: US (occurrence: US)
  Receive Date: 20190326
  Receipt Date: 20190326
  Transmission Date: 20190418
  Serious: Yes (Hospitalization)
  Sender: FDA-Public Use
  Company Number: PHHO2013US013605

PATIENT
  Age: 5 Year
  Sex: Male
  Weight: 19.8 kg

DRUGS (4)
  1. KYMRIAH [Suspect]
     Active Substance: TISAGENLECLEUCEL
     Dosage: 30 % DOSE OF INFUSION IN 30 ML, ONCE, CVL
     Route: 042
     Dates: start: 20131003, end: 20131003
  2. KYMRIAH [Suspect]
     Active Substance: TISAGENLECLEUCEL
     Indication: ACUTE LYMPHOCYTIC LEUKAEMIA
     Dosage: 10 % DOSE OF INFUSION IN 30 ML, ONCE, CVL
     Route: 042
     Dates: start: 20131002, end: 20131002
  3. KYMRIAH [Suspect]
     Active Substance: TISAGENLECLEUCEL
     Dosage: 60 % DOSE OF INFUSION IN 30 ML, ONCE, CVL
     Route: 042
     Dates: start: 201604, end: 201604
  4. SYNTHROID [Concomitant]
     Active Substance: LEVOTHYROXINE SODIUM
     Indication: PRODUCT USED FOR UNKNOWN INDICATION
     Route: 065

REACTIONS (4)
  - Dehydration [Recovered/Resolved]
  - Headache [Recovered/Resolved]
  - Pyrexia [Recovered/Resolved]
  - Pyrexia [Recovered/Resolved]

NARRATIVE: CASE EVENT DATE: 20131006
